FAERS Safety Report 6204755-5 (Version None)
Quarter: 2009Q2

REPORT INFORMATION
  Report Type: 
  Country: None (occurrence: None)
  Receive Date: 20090527
  Receipt Date: 20090515
  Transmission Date: 20091009
  Serious: Yes (Hospitalization, Other)
  Sender: FDA-Public Use
  Company Number: AR-PFIZER INC-2009211493

PATIENT
  Age: 63 Year

DRUGS (3)
  1. SUTENT [Suspect]
     Indication: RENAL CANCER
     Dosage: UNK
     Route: 048
     Dates: start: 20070101
  2. ISOSORBIDE [Concomitant]
  3. DILTIAZEM [Concomitant]

REACTIONS (1)
  - ANGINA UNSTABLE [None]
